FAERS Safety Report 9619805 (Version 1)
Quarter: 2013Q4

REPORT INFORMATION
  Report Type: Spontaneous
  Country: IT (occurrence: DE)
  Receive Date: 20131014
  Receipt Date: 20131014
  Transmission Date: 20140711
  Serious: Yes (Other)
  Sender: FDA-Public Use
  Company Number: DE-FRI-1000049970

PATIENT
  Age: 46 Year
  Sex: Female
  Weight: 95 kg

DRUGS (5)
  1. FOSFOMYCIN [Suspect]
     Indication: URINARY TRACT INFECTION
     Dosage: 3000 MG
     Route: 048
     Dates: start: 20130917, end: 20130917
  2. LAIF [Concomitant]
     Indication: DEPRESSION
  3. METFORMIN [Concomitant]
     Indication: DIABETES MELLITUS
  4. RAMIPRIL [Concomitant]
     Indication: HYPERTENSION
  5. VICTOZA [Concomitant]

REACTIONS (3)
  - Hyperhidrosis [Recovered/Resolved]
  - Insomnia [Recovered/Resolved]
  - Pruritus generalised [Recovered/Resolved]
